FAERS Safety Report 7457516-3 (Version None)
Quarter: 2011Q2

REPORT INFORMATION
  Report Type: 
  Country: None (occurrence: None)
  Receive Date: 20110504
  Receipt Date: 20110503
  Transmission Date: 20111010
  Serious: Yes (Hospitalization)
  Sender: FDA-Public Use
  Company Number: BR-BRISTOL-MYERS SQUIBB COMPANY-15380967

PATIENT
  Age: 59 Year
  Sex: Male

DRUGS (2)
  1. CISPLATIN [Suspect]
     Indication: GASTROOESOPHAGEAL CANCER
     Dosage: ON DAY 1 OF CYLCE RECENT INF:16SEP2010
     Route: 042
     Dates: start: 20100916
  2. XELODA [Suspect]
     Indication: GASTROOESOPHAGEAL CANCER
     Dosage: ON DAY 1-15 RECENT INF:30SEP2010 INTER ON 30SEP10
     Route: 048
     Dates: start: 20100916

REACTIONS (1)
  - DEHYDRATION [None]
